FAERS Safety Report 4607991-4 (Version None)
Quarter: 2005Q2

REPORT INFORMATION
  Report Type: 
  Country: None (occurrence: None)
  Receive Date: 20050303
  Receipt Date: 20041214
  Transmission Date: 20051028
  Serious: No
  Sender: FDA-Public Use
  Company Number: 211121

PATIENT
  Age: 83 Year
  Sex: Female

DRUGS (3)
  1. XOLAIR [Suspect]
     Indication: ASTHMA
     Dosage: Q4W, SUBCUTANEOUS
     Route: 058
     Dates: start: 20040801
  2. LIPID LOWERING AGENT (LIPID LOWERING DRUG) [Concomitant]
  3. LIPITOR [Concomitant]

REACTIONS (2)
  - ASTHENIA [None]
  - LETHARGY [None]
